FAERS Safety Report 9030335 (Version 1)
Quarter: 2013Q1

REPORT INFORMATION
  Report Type: Spontaneous
  Country: GB (occurrence: GB)
  Receive Date: 20130122
  Receipt Date: 20130122
  Transmission Date: 20140127
  Serious: Yes (Life-Threatening)
  Sender: FDA-Public Use
  Company Number: GB-PFIZER INC-2013021466

PATIENT
  Age: 56 Year
  Sex: Female

DRUGS (1)
  1. TORISEL [Suspect]
     Indication: RENAL CANCER METASTATIC
     Dosage: 25 MG, WEEKLY
     Route: 042
     Dates: start: 20120228, end: 20121211

REACTIONS (3)
  - Cardiac failure [Not Recovered/Not Resolved]
  - Cardiomegaly [Unknown]
  - Right ventricular failure [Unknown]
